FAERS Safety Report 13579252 (Version 1)
Quarter: 2017Q2

REPORT INFORMATION
  Report Type: Other
  Country: US (occurrence: NP)
  Receive Date: 20170523
  Receipt Date: 20170523
  Transmission Date: 20170830
  Serious: Yes (Hospitalization, Other)
  Sender: FDA-Public Use
  Company Number: US-MICRO LABS LIMITED-ML2017-00659

PATIENT
  Age: 76 Year
  Sex: Male

DRUGS (16)
  1. ESCITALOPRAM [Concomitant]
     Active Substance: ESCITALOPRAM OXALATE
     Indication: PRODUCT USED FOR UNKNOWN INDICATION
     Dosage: ALL OF HIS PILLS FOR MORNING, MIDDAY AND NIGHT
     Route: 065
  2. ASPIRIN. [Concomitant]
     Active Substance: ASPIRIN
     Indication: PRODUCT USED FOR UNKNOWN INDICATION
     Dosage: ALL OF HIS PILLS FOR MORNING, MIDDAY AND NIGHT
     Route: 065
  3. NITROGLYCERINE [Concomitant]
     Active Substance: NITROGLYCERIN
     Indication: PRODUCT USED FOR UNKNOWN INDICATION
     Dosage: ALL OF HIS PILLS FOR MORNING, MIDDAY AND NIGHT
     Route: 065
  4. TYLENOL [Concomitant]
     Active Substance: ACETAMINOPHEN
     Indication: PRODUCT USED FOR UNKNOWN INDICATION
     Dosage: ALL OF HIS PILLS FOR MORNING, MIDDAY AND NIGHT
     Route: 065
  5. OLMESARTAN [Suspect]
     Active Substance: OLMESARTAN
     Indication: PRODUCT USED FOR UNKNOWN INDICATION
     Dosage: ALL OF HIS PILLS FOR MORNING, MIDDAY AND NIGHT
     Route: 065
  6. PANTOPRAZOLE [Concomitant]
     Active Substance: PANTOPRAZOLE
     Indication: PRODUCT USED FOR UNKNOWN INDICATION
     Dosage: ALL OF HIS PILLS FOR MORNING, MIDDAY AND NIGHT
     Route: 065
  7. MIRTAZAPINE. [Concomitant]
     Active Substance: MIRTAZAPINE
     Indication: PRODUCT USED FOR UNKNOWN INDICATION
     Dosage: ALL OF HIS PILLS FOR MORNING, MIDDAY AND NIGHT
     Route: 065
  8. LOSARTAN. [Suspect]
     Active Substance: LOSARTAN
     Indication: PRODUCT USED FOR UNKNOWN INDICATION
     Dosage: ALL OF HIS PILLS FOR MORNING, MIDDAY AND NIGHT
     Route: 065
  9. SIMVASTATIN. [Concomitant]
     Active Substance: SIMVASTATIN
     Indication: PRODUCT USED FOR UNKNOWN INDICATION
     Dosage: ALL OF HIS PILLS FOR MORNING, MIDDAY AND NIGHT
     Route: 065
  10. CLOPIDOGREL [Concomitant]
     Active Substance: CLOPIDOGREL BISULFATE
     Indication: PRODUCT USED FOR UNKNOWN INDICATION
     Dosage: ALL OF HIS PILLS FOR MORNING, MIDDAY AND NIGHT
     Route: 065
  11. CARVEDILOL. [Concomitant]
     Active Substance: CARVEDILOL
     Indication: PRODUCT USED FOR UNKNOWN INDICATION
     Dosage: ALL OF HIS PILLS FOR MORNING, MIDDAY AND NIGHT
     Route: 065
  12. NIACIN. [Concomitant]
     Active Substance: NIACIN
     Indication: PRODUCT USED FOR UNKNOWN INDICATION
     Dosage: ALL OF HIS PILLS FOR MORNING, MIDDAY AND NIGHT
     Route: 065
  13. CODEINE [Concomitant]
     Active Substance: CODEINE
     Indication: PRODUCT USED FOR UNKNOWN INDICATION
     Route: 065
  14. AMLODIPINE [Suspect]
     Active Substance: AMLODIPINE BESYLATE
     Indication: PRODUCT USED FOR UNKNOWN INDICATION
     Dosage: ALL OF HIS PILLS FOR MORNING, MIDDAY AND NIGHT
     Route: 065
  15. HYDRALAZINE [Concomitant]
     Active Substance: HYDRALAZINE HYDROCHLORIDE
     Indication: PRODUCT USED FOR UNKNOWN INDICATION
     Dosage: ALL OF HIS PILLS FOR MORNING, MIDDAY AND NIGHT
     Route: 065
  16. FINASTERIDE. [Concomitant]
     Active Substance: FINASTERIDE
     Indication: PRODUCT USED FOR UNKNOWN INDICATION
     Dosage: ALL OF HIS PILLS FOR MORNING, MIDDAY AND NIGHT
     Route: 065

REACTIONS (5)
  - Presyncope [Recovered/Resolved]
  - Myasthenia gravis [Unknown]
  - Dizziness [Recovered/Resolved]
  - Accidental overdose [Unknown]
  - Hypotension [Unknown]
